FAERS Safety Report 8788882 (Version 2)
Quarter: 2013Q4

REPORT INFORMATION
  Report Type: Spontaneous
  Country: US (occurrence: US)
  Receive Date: 20120916
  Receipt Date: 20131101
  Transmission Date: 20140711
  Serious: No
  Sender: FDA-Public Use
  Company Number: US-009507513-1209USA003852

PATIENT
  Sex: Male
  Weight: 62.13 kg

DRUGS (2)
  1. SAPHRIS [Suspect]
     Indication: BIPOLAR DISORDER
     Dosage: 5 MG, UNK
     Route: 060
  2. SAPHRIS [Suspect]
     Indication: MOOD SWINGS

REACTIONS (2)
  - Rash pruritic [Recovered/Resolved]
  - Restlessness [Recovered/Resolved]
